FAERS Safety Report 6829609-2 (Version None)
Quarter: 2010Q3

REPORT INFORMATION
  Report Type: 
  Country: None (occurrence: None)
  Receive Date: 20100709
  Receipt Date: 20070409
  Transmission Date: 20110219
  Serious: No
  Sender: FDA-Public Use
  Company Number: US-PFIZER INC-2007012197

PATIENT
  Sex: Male
  Weight: 79.83 kg

DRUGS (8)
  1. CHANTIX [Suspect]
     Indication: SMOKING CESSATION THERAPY
     Route: 048
     Dates: start: 20070207, end: 20070210
  2. VERAPAMIL [Concomitant]
  3. CITALOPRAM HYDROBROMIDE [Concomitant]
  4. CRESTOR [Concomitant]
  5. BUPROPION HCL [Concomitant]
  6. ACETYLSALICYLIC ACID [Concomitant]
  7. PEPCID [Concomitant]
  8. LAXATIVES [Concomitant]

REACTIONS (5)
  - CHILLS [None]
  - COLD SWEAT [None]
  - DECREASED APPETITE [None]
  - DIZZINESS [None]
  - MUSCULAR WEAKNESS [None]
